FAERS Safety Report 7381852-2 (Version None)
Quarter: 2011Q1

REPORT INFORMATION
  Report Type: 
  Country: None (occurrence: None)
  Receive Date: 20110329
  Receipt Date: 20110323
  Transmission Date: 20110831
  Serious: Yes (Hospitalization, Other)
  Sender: FDA-Public Use
  Company Number: JP-PFIZER INC-2011063152

PATIENT
  Age: 37 Year
  Sex: Male
  Weight: 63.6 kg

DRUGS (4)
  1. METHYLPREDNISOLONE [Suspect]
     Indication: POLYSEROSITIS
     Dosage: 0.5 G/DAY X 3 DAYS
  2. PREDNISOLONE [Suspect]
     Indication: POLYSEROSITIS
     Dosage: 60 MG/DAY
     Route: 042
  3. PREDNISOLONE [Suspect]
     Dosage: 40 MG/DAY
  4. PREDNISOLONE [Suspect]
     Dosage: 60 MG/DAY

REACTIONS (1)
  - THROMBOTIC MICROANGIOPATHY [None]
